FAERS Safety Report 23693307 (Version 3)
Quarter: 2024Q2

REPORT INFORMATION
  Report Type: Report from Study
  Country: TR (occurrence: TR)
  Receive Date: 20240401
  Receipt Date: 20240429
  Transmission Date: 20240716
  Serious: Yes (Hospitalization)
  Sender: FDA-Public Use
  Company Number: TR-ABBVIE-5700488

PATIENT
  Age: 71 Year
  Sex: Male

DRUGS (2)
  1. CARBIDOPA\LEVODOPA [Suspect]
     Active Substance: CARBIDOPA\LEVODOPA
     Indication: Parkinson^s disease
     Dosage: MORNING DOSE (ML): 8.50 CONTINUOUS DOSE (ML): 5.80 EXTRA DOSE (ML): 2.30
     Route: 050
     Dates: start: 20160412
  2. CARBIDOPA\LEVODOPA [Suspect]
     Active Substance: CARBIDOPA\LEVODOPA
     Indication: Parkinson^s disease
     Dosage: MORNING DOSE (ML): 6.00 CONTINUOUS DOSE (ML): 6.00 EXTRA DOSE (ML): 2.70
     Route: 050

REACTIONS (4)
  - Polyneuropathy [Recovered/Resolved]
  - General physical health deterioration [Recovered/Resolved]
  - Muscular weakness [Recovered/Resolved]
  - Polyneuropathy [Not Recovered/Not Resolved]

NARRATIVE: CASE EVENT DATE: 20240328
